FAERS Safety Report 7995236-7 (Version None)
Quarter: 2011Q4

REPORT INFORMATION
  Report Type: 
  Country: None (occurrence: None)
  Receive Date: 20111220
  Receipt Date: 20111220
  Transmission Date: 20120403
  Serious: Yes (Other)
  Sender: FDA-Public Use
  Company Number: None

PATIENT
  Sex: Female
  Weight: 63.502 kg

DRUGS (1)
  1. LEVOFLOXACIN [Suspect]
     Indication: PROPHYLAXIS
     Dosage: 3 TABLETS
     Route: 048
     Dates: start: 20111209, end: 20111213

REACTIONS (8)
  - GAIT DISTURBANCE [None]
  - ARTHRALGIA [None]
  - MYALGIA [None]
  - INFLUENZA [None]
  - NEURALGIA [None]
  - FIBROMYALGIA [None]
  - INSOMNIA [None]
  - TENDON PAIN [None]
